FAERS Safety Report 4780016-6 (Version None)
Quarter: 2005Q3

REPORT INFORMATION
  Report Type: 
  Country: None (occurrence: None)
  Receive Date: 20050914
  Receipt Date: 20040831
  Transmission Date: 20060218
  Serious: Yes (Death)
  Sender: FDA-Public Use
  Company Number: 163-20785-04070423

PATIENT
  Age: 69 Year
  Sex: Female

DRUGS (3)
  1. THALOMID [Suspect]
     Indication: NEOPLASM MALIGNANT
     Dosage: 50 MG, QD, ORAL; 200 MG, QD, ORAL;  100 MG, QD, ORAL
     Route: 048
     Dates: start: 20040603, end: 20040606
  2. THALOMID [Suspect]
     Indication: NEOPLASM MALIGNANT
     Dosage: 50 MG, QD, ORAL; 200 MG, QD, ORAL;  100 MG, QD, ORAL
     Route: 048
     Dates: start: 20040607, end: 20040613
  3. THALOMID [Suspect]
     Indication: NEOPLASM MALIGNANT
     Dosage: 50 MG, QD, ORAL; 200 MG, QD, ORAL;  100 MG, QD, ORAL
     Route: 048
     Dates: start: 20040625, end: 20040701

REACTIONS (4)
  - DEATH [None]
  - DISEASE PROGRESSION [None]
  - HYPERSENSITIVITY [None]
  - RASH [None]
